FAERS Safety Report 11768088 (Version 1)
Quarter: 2015Q4

REPORT INFORMATION
  Report Type: Spontaneous
  Country: US (occurrence: None)
  Receive Date: 20151120
  Receipt Date: 20151120
  Transmission Date: 20160304
  Serious: Yes (Disabling, Other)
  Sender: FDA-Public Use
  Company Number: None

PATIENT
  Age: 46 Year
  Sex: Female
  Weight: 81.19 kg

DRUGS (7)
  1. XARELTO [Suspect]
     Active Substance: RIVAROXABAN
     Indication: DEEP VEIN THROMBOSIS
     Dosage: 20MG/1 TABLET ONCE DAILY TAKEN BY MOUTH
     Route: 048
     Dates: start: 20150907, end: 20151119
  2. SUMATRIPTAN. [Concomitant]
     Active Substance: SUMATRIPTAN
  3. PROGESTERONE. [Concomitant]
     Active Substance: PROGESTERONE
  4. B-VITAMIN COMPLEX [Concomitant]
  5. VITAMIN D3 [Concomitant]
     Active Substance: CHOLECALCIFEROL
  6. XARELTO [Suspect]
     Active Substance: RIVAROXABAN
     Indication: PULMONARY EMBOLISM
     Dosage: 20MG/1 TABLET ONCE DAILY TAKEN BY MOUTH
     Route: 048
     Dates: start: 20150907, end: 20151119
  7. XARELTO [Concomitant]
     Active Substance: RIVAROXABAN

REACTIONS (3)
  - Menorrhagia [None]
  - Oligomenorrhoea [None]
  - Thrombosis [None]

NARRATIVE: CASE EVENT DATE: 20151021
